FAERS Safety Report 17911356 (Version 4)
Quarter: 2020Q3

REPORT INFORMATION
  Report Type: Spontaneous
  Country: GB (occurrence: GB)
  Receive Date: 20200618
  Receipt Date: 20200902
  Transmission Date: 20201103
  Serious: Yes (Other)
  Sender: FDA-Public Use
  Company Number: GB-PFIZER INC-2020234561

PATIENT
  Age: 51 Year
  Sex: Male

DRUGS (9)
  1. BISOPROLOL [Concomitant]
     Active Substance: BISOPROLOL
     Indication: CARDIAC FAILURE
     Dosage: UNK
     Dates: start: 201806
  2. BISOPROLOL [Concomitant]
     Active Substance: BISOPROLOL
     Dosage: 10 MG, DAILY (GRADUALLY TITRATED UPWARDS)
     Dates: start: 201810
  3. RAMIPRIL. [Concomitant]
     Active Substance: RAMIPRIL
     Indication: CARDIAC FAILURE
     Dosage: UNK
     Dates: start: 201806
  4. RAMIPRIL. [Concomitant]
     Active Substance: RAMIPRIL
     Dosage: 10 MG, DAILY (GRADUALLY TITRATED UPWARDS)
     Dates: start: 201810
  5. CLOZAPINE. [Concomitant]
     Active Substance: CLOZAPINE
     Indication: CARDIAC FAILURE
     Dosage: 300 MG, DAILY
     Dates: start: 201806
  6. LITHIUM. [Suspect]
     Active Substance: LITHIUM
     Dosage: UNK
     Dates: start: 2010
  7. EPLERENONE. [Suspect]
     Active Substance: EPLERENONE
     Indication: CARDIAC FAILURE
     Dosage: 25 MG
     Dates: start: 201811
  8. LITHIUM. [Suspect]
     Active Substance: LITHIUM
     Dosage: UNK
     Dates: start: 201810
  9. CLOZAPINE. [Concomitant]
     Active Substance: CLOZAPINE
     Dosage: UNK (INCREASED)
     Dates: start: 201810

REACTIONS (1)
  - Renal impairment [Unknown]
